FAERS Safety Report 9443454 (Version 5)
Quarter: 2013Q3

REPORT INFORMATION
  Report Type: Report from Study
  Country: DE (occurrence: DE)
  Receive Date: 20130806
  Receipt Date: 20130919
  Transmission Date: 20140515
  Serious: Yes (Hospitalization, Other)
  Sender: FDA-Public Use
  Company Number: DE-GLAXOSMITHKLINE-Z0019475C

PATIENT
  Age: 74 Year
  Sex: Male
  Weight: 70.4 kg

DRUGS (7)
  1. DABRAFENIB [Suspect]
     Indication: MALIGNANT MELANOMA
     Dosage: 75MG TWICE PER DAY
     Route: 048
     Dates: start: 20121127, end: 20130802
  2. TRAMETINIB [Suspect]
     Indication: MALIGNANT MELANOMA
     Dosage: 2MG PER DAY
     Route: 048
     Dates: start: 20121128, end: 20130802
  3. BIKALM [Concomitant]
     Indication: SLEEP DISORDER
     Dosage: 10MG SINGLE DOSE
     Route: 048
     Dates: start: 20130817, end: 20130817
  4. PANTOZOL [Concomitant]
     Indication: PROPHYLAXIS
     Dosage: 40MG PER DAY
     Route: 045
     Dates: start: 20130816
  5. IRENAT [Concomitant]
     Dosage: 20DROP PER DAY
     Route: 048
     Dates: start: 20130820, end: 20130826
  6. VOMEX [Concomitant]
     Indication: NAUSEA
     Dosage: 1CAP SINGLE DOSE
     Route: 048
     Dates: start: 20130829, end: 20130829
  7. MOVICOL [Concomitant]
     Indication: PROPHYLAXIS
     Dosage: 1APP PER DAY
     Route: 048
     Dates: start: 20130827, end: 20130830

REACTIONS (3)
  - Ejection fraction decreased [Not Recovered/Not Resolved]
  - General physical health deterioration [Recovering/Resolving]
  - Deep vein thrombosis [Recovering/Resolving]
